FAERS Safety Report 9478849 (Version 2)
Quarter: 2013Q4

REPORT INFORMATION
  Report Type: Spontaneous
  Country: US (occurrence: US)
  Receive Date: 20130827
  Receipt Date: 20131016
  Transmission Date: 20140711
  Serious: Yes (Other)
  Sender: FDA-Public Use
  Company Number: PHHY2013US092281

PATIENT
  Sex: Female

DRUGS (25)
  1. BACLOFEN INTRATHECAL [Suspect]
     Indication: PAIN
     Dosage: 17 UG, DAILY
     Route: 037
  2. BACLOFEN INTRATHECAL [Suspect]
     Dosage: 141 UG, DAILY
     Route: 037
  3. BACLOFEN INTRATHECAL [Suspect]
     Dosage: 16.99 UG, DAILY
     Route: 037
  4. BACLOFEN INTRATHECAL [Suspect]
     Dosage: 141.54 UG, DAILY
     Route: 037
     Dates: start: 20130521
  5. BACLOFEN INTRATHECAL [Suspect]
     Dosage: UNK UKN, UNK (^5. ^ EXACT DOSE UNCLEAR
  6. FENTANYL [Suspect]
     Dosage: 500 UG, DAILY
     Route: 037
  7. FENTANYL [Suspect]
     Dosage: 600 UG, DAILY
     Route: 037
  8. FENTANYL [Suspect]
     Dosage: 5000 UG, DAILY
     Route: 037
  9. FENTANYL [Suspect]
     Dosage: 599.8 UG, DAILY
     Route: 037
  10. FENTANYL [Suspect]
     Dosage: 4995.7 UG, DAILY
     Route: 037
     Dates: start: 20130521
  11. FENTANYL [Suspect]
     Dosage: 570.2 UG, DAILY
     Route: 037
     Dates: start: 201309
  12. CLONIDINE [Suspect]
     Dosage: 32.5 UG, DAILY
     Route: 037
  13. CLONIDINE [Suspect]
     Dosage: 270 UG, DAILY
     Route: 037
  14. CLONIDINE [Suspect]
     Dosage: 32.49 UG, DAILY
     Route: 037
  15. CLONIDINE [Suspect]
     Dosage: 24.978 MG, DAILY
     Route: 037
     Dates: start: 20130521
  16. CLONIDINE [Suspect]
     Dosage: 2.851 MG, DAILY
     Route: 037
     Dates: start: 201309
  17. BUPIVACAINE [Suspect]
     Dosage: 3 MG, DAILY
     Route: 037
  18. BUPIVACAINE [Suspect]
     Dosage: 25 MG, DAILY
     Route: 037
  19. BUPIVACAINE [Suspect]
     Dosage: 2.999 MG, DAILY
     Route: 037
  20. BUPIVACAINE [Suspect]
     Dosage: 24.978 MG, DAILY
     Route: 037
     Dates: start: 20130521
  21. BUPIVACAINE [Suspect]
     Dosage: 2.851 MG, DAILY
     Route: 037
     Dates: start: 201309
  22. DILAUDID [Suspect]
     Dosage: 3 MG, DAILY
     Route: 037
  23. DILAUDID [Suspect]
     Dosage: 0.399 MG, DAILY
     Route: 037
  24. DILAUDID [Suspect]
     Dosage: 3.330 MG, DAILY
     Route: 037
     Dates: start: 20130521
  25. DILAUDID [Suspect]
     Dosage: .038 MG, DAILY
     Route: 037
     Dates: start: 201309

REACTIONS (10)
  - Spinal cord injury [Unknown]
  - Cardiac disorder [Unknown]
  - Malaise [Unknown]
  - Unevaluable event [Unknown]
  - Fall [Unknown]
  - Pain [Unknown]
  - Depression [Unknown]
  - Hypertension [Unknown]
  - No therapeutic response [Unknown]
  - Drug withdrawal syndrome [Unknown]
